FAERS Safety Report 13462010 (Version 1)
Quarter: 2017Q2

REPORT INFORMATION
  Report Type: Spontaneous
  Country: US (occurrence: US)
  Receive Date: 20170420
  Receipt Date: 20170420
  Transmission Date: 20170830
  Serious: No
  Sender: FDA-Public Use
  Company Number: None

PATIENT
  Sex: Female

DRUGS (1)
  1. NOVOLOG [Suspect]
     Active Substance: INSULIN ASPART

REACTIONS (4)
  - Blood glucose increased [None]
  - Product packaging confusion [None]
  - Wrong technique in device usage process [None]
  - Drug dose omission [None]
